FAERS Safety Report 5426601-X (Version None)
Quarter: 2007Q3

REPORT INFORMATION
  Report Type: 
  Country: None (occurrence: None)
  Receive Date: 20070827
  Receipt Date: 20070814
  Transmission Date: 20080115
  Serious: Yes (Other)
  Sender: FDA-Public Use
  Company Number: US-ELI_LILLY_AND_COMPANY-US200708003497

PATIENT
  Sex: Female

DRUGS (1)
  1. STRATTERA [Suspect]
     Dates: start: 20070401, end: 20070501

REACTIONS (1)
  - TACHYCARDIA [None]
